FAERS Safety Report 9465824 (Version 2)
Quarter: 2014Q1

REPORT INFORMATION
  Report Type: Spontaneous
  Country: FR (occurrence: FR)
  Receive Date: 20130820
  Receipt Date: 20140203
  Transmission Date: 20141002
  Serious: Yes (Other)
  Sender: FDA-Public Use
  Company Number: FR-PFIZER INC-2013236836

PATIENT
  Age: 61 Year
  Sex: Male

DRUGS (5)
  1. INIPOMP [Suspect]
     Indication: GASTROOESOPHAGEAL REFLUX DISEASE
     Dosage: 40 MG, DAILY
     Route: 048
  2. ATRIPLA [Suspect]
     Indication: HIV INFECTION
     Dosage: 600/200/245 MG, QD
     Route: 048
     Dates: start: 20090702
  3. ALLOPURINOL [Suspect]
     Dosage: 200 MG, DAILY
     Route: 048
  4. UVEDOSE [Suspect]
     Dosage: DAILY DOSE: 0.0111 (1/3 MONTHS))
     Route: 048
  5. CRESTOR [Suspect]
     Indication: DYSLIPIDAEMIA
     Dosage: 5 MG, DAILY
     Route: 048
     Dates: start: 20091022

REACTIONS (1)
  - Renal failure [Not Recovered/Not Resolved]
